FAERS Safety Report 6984196-3 (Version None)
Quarter: 2010Q3

REPORT INFORMATION
  Report Type: 
  Country: None (occurrence: None)
  Receive Date: 20100915
  Receipt Date: 20100907
  Transmission Date: 20110219
  Serious: Yes (Hospitalization)
  Sender: FDA-Public Use
  Company Number: US-BIOGENIDEC-2010BI031191

PATIENT
  Age: 56 Year
  Sex: Female
  Weight: 58 kg

DRUGS (2)
  1. TYSABRI [Suspect]
     Indication: MULTIPLE SCLEROSIS
     Route: 042
     Dates: start: 20070601
  2. LIORESAL [Concomitant]
     Indication: MUSCLE SPASMS

REACTIONS (6)
  - COORDINATION ABNORMAL [None]
  - DRUG DELIVERY DEVICE IMPLANTATION [None]
  - MULTIPLE SCLEROSIS RELAPSE [None]
  - MUSCLE RIGIDITY [None]
  - MUSCULOSKELETAL DISORDER [None]
  - POOR QUALITY SLEEP [None]
